FAERS Safety Report 14432298 (Version 2)
Quarter: 2018Q1

REPORT INFORMATION
  Report Type: Report from Study
  Country: ES (occurrence: ES)
  Receive Date: 20180124
  Receipt Date: 20180129
  Transmission Date: 20180509
  Serious: Yes (Hospitalization)
  Sender: FDA-Public Use
  Company Number: ES-PFIZER INC-2018029430

PATIENT
  Age: 90 Year
  Sex: Female

DRUGS (9)
  1. CO-DIOVAN [Suspect]
     Active Substance: HYDROCHLOROTHIAZIDE\VALSARTAN
     Dosage: UNK, 1X/DAY (1-0-0)
     Dates: start: 20150326
  2. SERC [Concomitant]
     Active Substance: BETAHISTINE HYDROCHLORIDE
     Dosage: UNK
  3. SINTROM [Concomitant]
     Active Substance: ACENOCOUMAROL
     Dosage: UNK, AS NEEDED
  4. VERSATIS [Concomitant]
     Active Substance: LIDOCAINE
     Dosage: UNK
  5. ZEBINIX [Suspect]
     Active Substance: ESLICARBAZEPINE ACETATE
     Dosage: UNK UNK, 1X/DAY (0-0-1)
     Route: 048
     Dates: start: 2017, end: 20171031
  6. BISOPROLOL [Concomitant]
     Active Substance: BISOPROLOL
     Dosage: UNK
     Dates: start: 20150702
  7. GABAPENTIN. [Suspect]
     Active Substance: GABAPENTIN
     Dosage: UNK
     Dates: start: 20171017, end: 20171031
  8. MIRTAZAPINE. [Suspect]
     Active Substance: MIRTAZAPINE
     Dosage: UNK, 1X/DAY (0-0-1)
     Route: 048
     Dates: start: 20170420, end: 20171031
  9. LEXATIN /00424801/ [Concomitant]
     Active Substance: BROMAZEPAM
     Dosage: UNK
     Dates: start: 20170831

REACTIONS (1)
  - Inappropriate antidiuretic hormone secretion [Recovered/Resolved]

NARRATIVE: CASE EVENT DATE: 20171031
